FAERS Safety Report 11714123 (Version 1)
Quarter: 2015Q4

REPORT INFORMATION
  Report Type: Spontaneous
  Country: US (occurrence: None)
  Receive Date: 20151106
  Receipt Date: 20151106
  Transmission Date: 20160304
  Serious: Yes (Disabling)
  Sender: FDA-Public Use
  Company Number: None

PATIENT
  Age: 37 Year
  Sex: Female
  Weight: 56.7 kg

DRUGS (9)
  1. LEVAQUIN [Suspect]
     Active Substance: LEVOFLOXACIN
     Indication: SINUSITIS
  2. LEVAQUIN [Suspect]
     Active Substance: LEVOFLOXACIN
     Indication: UPPER RESPIRATORY TRACT INFECTION
  3. PROBIOTICS [Concomitant]
     Active Substance: PROBIOTICS NOS
  4. CIPRO [Suspect]
     Active Substance: CIPROFLOXACIN HYDROCHLORIDE
  5. AVELOX [Suspect]
     Active Substance: MOXIFLOXACIN HYDROCHLORIDE
  6. CALCIUM [Concomitant]
     Active Substance: CALCIUM
  7. METFORMIN [Concomitant]
     Active Substance: METFORMIN HYDROCHLORIDE
  8. MULTI-VITAMINS [Concomitant]
  9. LEVAQUIN [Suspect]
     Active Substance: LEVOFLOXACIN
     Indication: URINARY TRACT INFECTION

REACTIONS (17)
  - Joint swelling [None]
  - Abdominal pain [None]
  - Abdominal distension [None]
  - Diarrhoea [None]
  - Thinking abnormal [None]
  - Pain in extremity [None]
  - Muscular weakness [None]
  - Tendon disorder [None]
  - Arthralgia [None]
  - Fatigue [None]
  - Urticaria [None]
  - Gluten sensitivity [None]
  - Musculoskeletal stiffness [None]
  - Vomiting [None]
  - Food allergy [None]
  - Feeling abnormal [None]
  - Grip strength decreased [None]

NARRATIVE: CASE EVENT DATE: 20090501
